FAERS Safety Report 19578873 (Version 3)
Quarter: 2021Q3

REPORT INFORMATION
  Report Type: Report from Study
  Country: US (occurrence: US)
  Receive Date: 20210719
  Receipt Date: 20210921
  Transmission Date: 20211014
  Serious: No
  Sender: FDA-Public Use
  Company Number: NVSC2021US154931

PATIENT
  Sex: Female

DRUGS (2)
  1. ENTRESTO [Suspect]
     Active Substance: SACUBITRIL\VALSARTAN
     Indication: PRODUCT USED FOR UNKNOWN INDICATION
     Dosage: UNK, BID
     Route: 048
     Dates: start: 202103
  2. WATER PILLS [Concomitant]
     Active Substance: UNSPECIFIED INGREDIENT
     Indication: FLUID IMBALANCE
     Dosage: 1 DF, BID
     Route: 065

REACTIONS (1)
  - Ejection fraction decreased [Recovering/Resolving]
